FAERS Safety Report 14187071 (Version 1)
Quarter: 2017Q4

REPORT INFORMATION
  Report Type: Spontaneous
  Country: US (occurrence: US)
  Receive Date: 20171113
  Receipt Date: 20171113
  Transmission Date: 20180321
  Serious: No
  Sender: FDA-Public Use
  Company Number: None

PATIENT
  Age: 34 Year
  Sex: Female
  Weight: 49.5 kg

DRUGS (5)
  1. SPIRONOLACTONE. [Concomitant]
     Active Substance: SPIRONOLACTONE
  2. SENNA/COLACE [Concomitant]
  3. CREST PRO-HEALTH CLINICAL [Suspect]
     Active Substance: CETYLPYRIDINIUM CHLORIDE
     Indication: DENTAL DISORDER PROPHYLAXIS
     Dosage: TWICE A DAY; 10 TABLESPOON(S); RINSE MOUTH FOR 30 SECONDS?
     Dates: start: 20171112, end: 20171113
  4. NEXIUM 24HR [Concomitant]
     Active Substance: ESOMEPRAZOLE MAGNESIUM
  5. CLARITIN [Concomitant]
     Active Substance: LORATADINE

REACTIONS (5)
  - Oral discomfort [None]
  - Gingival discomfort [None]
  - Tongue discomfort [None]
  - Throat irritation [None]
  - Ageusia [None]

NARRATIVE: CASE EVENT DATE: 20171113
